FAERS Safety Report 5171660-5 (Version None)
Quarter: 2006Q4

REPORT INFORMATION
  Report Type: 
  Country: None (occurrence: None)
  Receive Date: 20061205
  Receipt Date: 20061120
  Transmission Date: 20070319
  Serious: Yes (Hospitalization, Other)
  Sender: FDA-Public Use
  Company Number: 2006144084

PATIENT
  Age: 59 Year
  Sex: Male
  Weight: 99.7913 kg

DRUGS (7)
  1. GENOTROPIN [Suspect]
     Indication: HYPOPITUITARISM
     Dosage: 0.4 MG (0.4 MG, EVERY DAY), INTRAVENOUS
     Route: 042
     Dates: start: 20050801
  2. CORTEF [Concomitant]
  3. LUVOX [Concomitant]
  4. NABUMETONE [Concomitant]
  5. WELLBUTRIN [Concomitant]
  6. DOXYCYCLINE [Concomitant]
  7. ANDROGEL [Concomitant]

REACTIONS (6)
  - BLINDNESS [None]
  - CORONARY ARTERY OCCLUSION [None]
  - HEADACHE [None]
  - LOSS OF CONSCIOUSNESS [None]
  - MALAISE [None]
  - MENINGITIS VIRAL [None]
